FAERS Safety Report 5123084-4 (Version None)
Quarter: 2006Q4

REPORT INFORMATION
  Report Type: 
  Country: None (occurrence: None)
  Receive Date: 20061004
  Receipt Date: 20061004
  Transmission Date: 20070319
  Serious: Yes (Other)
  Sender: FDA-Public Use
  Company Number: None

PATIENT
  Age: 10 Month
  Sex: Male
  Weight: 12.4739 kg

DRUGS (1)
  1. OMNICEF [Suspect]
     Indication: EAR INFECTION
     Dosage: 3.5 ML 1X PER DAY PO
     Route: 048
     Dates: start: 20060917, end: 20060926

REACTIONS (2)
  - HAEMATOCHEZIA [None]
  - REACTION TO DRUG EXCIPIENTS [None]
